FAERS Safety Report 11698989 (Version 1)
Quarter: 2015Q4

REPORT INFORMATION
  Report Type: Spontaneous
  Country: US (occurrence: US)
  Receive Date: 20151104
  Receipt Date: 20151104
  Transmission Date: 20160304
  Serious: No
  Sender: FDA-Public Use
  Company Number: US-APOPHARMA USA, INC.-2012AP001874

PATIENT
  Age: 65 Year
  Sex: Female
  Weight: 54.9 kg

DRUGS (11)
  1. VITAMIN D [Concomitant]
     Active Substance: CHOLECALCIFEROL
  2. MAGNESIUM OXIDE. [Concomitant]
     Active Substance: MAGNESIUM OXIDE
  3. CYCLOSPORIN [Concomitant]
     Active Substance: CYCLOSPORINE
  4. ASA [Concomitant]
     Active Substance: ASPIRIN
  5. FOLIC ACID. [Concomitant]
     Active Substance: FOLIC ACID
  6. FERRIPROX [Suspect]
     Active Substance: DEFERIPRONE
     Indication: SICKLE CELL ANAEMIA
     Route: 048
     Dates: start: 20120615
  7. NORVASC [Concomitant]
     Active Substance: AMLODIPINE BESYLATE
  8. METOPROLOL [Concomitant]
     Active Substance: METOPROLOL
  9. PERCOCET [Concomitant]
     Active Substance: ACETAMINOPHEN\OXYCODONE HYDROCHLORIDE
  10. LOSARTAN. [Concomitant]
     Active Substance: LOSARTAN
  11. MS CONTIN [Concomitant]
     Active Substance: MORPHINE SULFATE

REACTIONS (3)
  - Eye swelling [Recovering/Resolving]
  - Nausea [Recovering/Resolving]
  - Constipation [Recovering/Resolving]

NARRATIVE: CASE EVENT DATE: 20120617
